FAERS Safety Report 6128693-1 (Version None)
Quarter: 2009Q1

REPORT INFORMATION
  Report Type: 
  Country: None (occurrence: None)
  Receive Date: 20090323
  Receipt Date: 20090311
  Transmission Date: 20090719
  Serious: Yes (Other)
  Sender: FDA-Public Use
  Company Number: BR-PFIZER INC-2009177558

PATIENT

DRUGS (3)
  1. EPELIN [Suspect]
     Indication: CONVULSION
     Dosage: UNK
     Route: 048
     Dates: start: 20020101
  2. DRUG, UNSPECIFIED [Suspect]
  3. GARDENAL ^AVENTIS^ [Concomitant]
     Dosage: UNK
     Dates: start: 20020101

REACTIONS (2)
  - AGITATION [None]
  - CONVULSION [None]
